FAERS Safety Report 12313421 (Version 1)
Quarter: 2016Q2

REPORT INFORMATION
  Report Type: Spontaneous
  Country: FR (occurrence: FR)
  Receive Date: 20160428
  Receipt Date: 20160428
  Transmission Date: 20160815
  Serious: Yes (Other)
  Sender: FDA-Public Use
  Company Number: FR-ELI_LILLY_AND_COMPANY-FR201604005824

PATIENT
  Age: 33 Year
  Sex: Female

DRUGS (1)
  1. ZYPADHERA [Suspect]
     Active Substance: OLANZAPINE PAMOATE
     Indication: PRODUCT USED FOR UNKNOWN INDICATION
     Dosage: 300 MG, OTHER
     Route: 030

REACTIONS (6)
  - Skin plaque [Unknown]
  - Eosinophil count increased [Unknown]
  - Erythema [Unknown]
  - Drug hypersensitivity [Unknown]
  - C-reactive protein increased [Unknown]
  - Face oedema [Unknown]
